FAERS Safety Report 7902895-3 (Version None)
Quarter: 2011Q4

REPORT INFORMATION
  Report Type: 
  Country: None (occurrence: None)
  Receive Date: 20111107
  Receipt Date: 20111024
  Transmission Date: 20120403
  Serious: Yes (Hospitalization)
  Sender: FDA-Public Use
  Company Number: WAES 1110USA03463

PATIENT
  Age: 66 Year
  Sex: Female

DRUGS (4)
  1. POWD AMEVIVE (ALEFACEPT) [Suspect]
     Route: 030
  2. ADVAIR DISKUS 100/50 [Concomitant]
  3. SINGULAIR [Suspect]
     Route: 048
  4. DICLOFENAC SODIUM [Concomitant]

REACTIONS (2)
  - ASTHMA [None]
  - RESPIRATORY TRACT INFECTION [None]
